FAERS Safety Report 5060332-3 (Version None)
Quarter: 2006Q3

REPORT INFORMATION
  Report Type: 
  Country: None (occurrence: None)
  Receive Date: 20060718
  Receipt Date: 20060628
  Transmission Date: 20061208
  Serious: Yes (Hospitalization, Other)
  Sender: FDA-Public Use
  Company Number: US200606005829

PATIENT
  Age: 54 Year
  Sex: Female

DRUGS (1)
  1. EVISTA [Suspect]
     Indication: OSTEOPENIA
     Dosage: ORAL
     Route: 048
     Dates: start: 19970101, end: 20001101

REACTIONS (4)
  - BREAST CANCER FEMALE [None]
  - BREAST DISCOMFORT [None]
  - OESTROGEN RECEPTOR ASSAY POSITIVE [None]
  - PHARMACEUTICAL PRODUCT COMPLAINT [None]
